FAERS Safety Report 22003046 (Version 1)
Quarter: 2023Q1

REPORT INFORMATION
  Report Type: Spontaneous
  Country: IL (occurrence: IL)
  Receive Date: 20230217
  Receipt Date: 20230217
  Transmission Date: 20230418
  Serious: Yes (Death, Hospitalization, Other)
  Sender: FDA-Public Use
  Company Number: IL-STERISCIENCE B.V.-2023-ST-000578

PATIENT
  Age: 52 Year
  Sex: Male

DRUGS (4)
  1. VANCOMYCIN [Suspect]
     Active Substance: VANCOMYCIN
     Indication: Acute haemorrhagic leukoencephalitis
     Dosage: UNK
  2. ACYCLOVIR [Suspect]
     Active Substance: ACYCLOVIR
     Indication: Acute haemorrhagic leukoencephalitis
     Dosage: UNK
  3. METHYLPREDNISOLONE [Suspect]
     Active Substance: METHYLPREDNISOLONE
     Indication: Acute haemorrhagic leukoencephalitis
     Dosage: 1 GRAM, QD
     Route: 042
  4. MANNITOL [Suspect]
     Active Substance: MANNITOL
     Indication: Acute haemorrhagic leukoencephalitis
     Dosage: UNK

REACTIONS (1)
  - Drug ineffective [Fatal]
